FAERS Safety Report 5775126-0 (Version None)
Quarter: 2008Q2

REPORT INFORMATION
  Report Type: 
  Country: None (occurrence: None)
  Receive Date: 20080617
  Receipt Date: 20080605
  Transmission Date: 20081010
  Serious: Yes (Hospitalization, Other)
  Sender: FDA-Public Use
  Company Number: FR-NOVOPROD-276206

PATIENT
  Age: 26 Year
  Sex: Female
  Weight: 157 kg

DRUGS (1)
  1. NORDITROPIN [Suspect]
     Indication: GROWTH HORMONE DEFICIENCY
     Dosage: .8 MG, QD
     Dates: start: 20031208

REACTIONS (2)
  - ERYSIPELAS [None]
  - MYOSITIS [None]
